FAERS Safety Report 21638134 (Version 4)
Quarter: 2023Q2

REPORT INFORMATION
  Report Type: Report from Study
  Country: CN (occurrence: None)
  Receive Date: 20221124
  Receipt Date: 20230425
  Transmission Date: 20230721
  Serious: Yes (Death, Hospitalization)
  Sender: FDA-Public Use
  Company Number: CN-ROCHE-3036191

PATIENT
  Sex: Female
  Weight: 70 kg

DRUGS (8)
  1. PLACEBO [Suspect]
     Active Substance: UNSPECIFIED INGREDIENT
     Indication: Small cell lung cancer
     Dosage: DATE OF MOST RECENT DOSE OF TIRAGOLIZUMAB/PLACEBO PRIOR TO SAE: 30/SEP/2022?DATE OF MOST RECENT DOSE
     Route: 042
     Dates: start: 20211202, end: 20220930
  2. ATEZOLIZUMAB [Suspect]
     Active Substance: ATEZOLIZUMAB
     Indication: Small cell lung cancer
     Dosage: DATE OF MOST RECENT DOSE 1200 MG OF OF ATEZOLIZUMAB PRIOR TO ADVERSE EVENT: 30/SEP/2022?DATE OF MOST
     Route: 041
     Dates: start: 20211202, end: 20220930
  3. METHYLPREDNISOLONE SODIUM SUCCINATE [Concomitant]
     Active Substance: METHYLPREDNISOLONE SODIUM SUCCINATE
     Indication: Radiation pneumonitis
     Route: 042
     Dates: start: 20220119, end: 20220125
  4. METHYLPREDNISOLONE [Concomitant]
     Active Substance: METHYLPREDNISOLONE
     Indication: Radiation pneumonitis
     Route: 048
     Dates: start: 20220126, end: 20220206
  5. METHYLPREDNISOLONE [Concomitant]
     Active Substance: METHYLPREDNISOLONE
     Route: 048
     Dates: start: 20220207, end: 20220216
  6. METHYLPREDNISOLONE [Concomitant]
     Active Substance: METHYLPREDNISOLONE
     Route: 048
     Dates: start: 20220217, end: 20220226
  7. METHYLPREDNISOLONE [Concomitant]
     Active Substance: METHYLPREDNISOLONE
     Route: 048
     Dates: start: 20220227, end: 20220308
  8. METHYLPREDNISOLONE [Concomitant]
     Active Substance: METHYLPREDNISOLONE
     Route: 048
     Dates: start: 20220309, end: 20220318

REACTIONS (7)
  - Respiratory failure [Fatal]
  - Circulatory collapse [Fatal]
  - Gamma-glutamyltransferase increased [Recovering/Resolving]
  - Radiation pneumonitis [Recovering/Resolving]
  - Hyperglycaemia [Recovering/Resolving]
  - Platelet count decreased [Not Recovered/Not Resolved]
  - Febrile neutropenia [Not Recovered/Not Resolved]

NARRATIVE: CASE EVENT DATE: 20220117
